FAERS Safety Report 8766750 (Version 3)
Quarter: 2012Q4

REPORT INFORMATION
  Report Type: 
  Country: JP (occurrence: JP)
  Receive Date: 20120904
  Receipt Date: 20121002
  Transmission Date: 20130627
  Serious: Yes (Other)
  Sender: FDA-Public Use
  Company Number: JP-JNJFOC-20120812901

PATIENT
  Age: 80 Year
  Sex: Female

DRUGS (5)
  1. TRAMCET [Suspect]
     Indication: PAIN
     Dosage: 1 per 1 day
     Route: 048
     Dates: start: 20120821, end: 20120829
  2. LYRICA [Concomitant]
     Indication: PAIN
     Dosage: once daily
     Route: 048
     Dates: start: 20120306
  3. TAKEPRON [Concomitant]
     Indication: HYPERTENSION
     Route: 065
  4. NAUZELIN [Concomitant]
     Dosage: once daily
     Route: 065
     Dates: start: 20120821, end: 20120829
  5. PAROXETINE HYDROCHLORIDE [Concomitant]
     Indication: DEPRESSION
     Dosage: once daily
     Route: 048
     Dates: start: 20120824

REACTIONS (8)
  - Depression [Unknown]
  - Peripheral arterial occlusive disease [Unknown]
  - Autonomic nervous system imbalance [Unknown]
  - Inadequate analgesia [Unknown]
  - Intention tremor [Recovered/Resolved]
  - Constipation [Recovered/Resolved]
  - Vomiting [Recovered/Resolved]
  - Writer^s cramp [Recovered/Resolved]
